FAERS Safety Report 16291022 (Version 1)
Quarter: 2019Q2

REPORT INFORMATION
  Report Type: Spontaneous
  Country: US (occurrence: US)
  Receive Date: 20190509
  Receipt Date: 20190509
  Transmission Date: 20190711
  Serious: Yes (Other)
  Sender: FDA-Public Use
  Company Number: US-PFIZER INC-2019195458

PATIENT
  Sex: Female

DRUGS (1)
  1. GABAPENTIN. [Suspect]
     Active Substance: GABAPENTIN
     Dosage: UNK

REACTIONS (10)
  - Drug tolerance [Unknown]
  - Inflammation [Unknown]
  - Depression [Unknown]
  - Drug dependence [Unknown]
  - Carpal tunnel syndrome [Unknown]
  - Neuropathy peripheral [Unknown]
  - Bursitis [Unknown]
  - Fibromyalgia [Unknown]
  - Quality of life decreased [Unknown]
  - Anxiety [Unknown]
